FAERS Safety Report 7468103-5 (Version None)
Quarter: 2011Q2

REPORT INFORMATION
  Report Type: 
  Country: None (occurrence: None)
  Receive Date: 20110509
  Receipt Date: 20110324
  Transmission Date: 20111010
  Serious: Yes (Hospitalization)
  Sender: FDA-Public Use
  Company Number: US-ALEXION-A201100383

PATIENT
  Sex: Female

DRUGS (2)
  1. SOLIRIS [Suspect]
     Dosage: 900 MG, UNK
     Route: 042
     Dates: end: 20090105
  2. SOLIRIS [Suspect]
     Indication: PAROXYSMAL NOCTURNAL HAEMOGLOBINURIA
     Dosage: UNK
     Route: 042
     Dates: start: 20080721

REACTIONS (5)
  - ANAEMIA [None]
  - CONDITION AGGRAVATED [None]
  - PANCYTOPENIA [None]
  - HYPERTENSION [None]
  - PAROXYSMAL NOCTURNAL HAEMOGLOBINURIA [None]
